FAERS Safety Report 4681216-6 (Version None)
Quarter: 2005Q2

REPORT INFORMATION
  Report Type: 
  Country: None (occurrence: None)
  Receive Date: 20050601
  Receipt Date: 20050523
  Transmission Date: 20051028
  Serious: Yes (Death)
  Sender: FDA-Public Use
  Company Number: 200512163BCC

PATIENT
  Age: 95 Month
  Sex: Female

DRUGS (2)
  1. ASPIRIN [Suspect]
     Indication: HEADACHE
     Dosage: IRR, ORAL
  2. PAIN MEDICATION (NOS) [Concomitant]

REACTIONS (1)
  - THYROID GLAND CANCER [None]
